FAERS Safety Report 24715253 (Version 3)
Quarter: 2025Q1

REPORT INFORMATION
  Report Type: Spontaneous
  Country: JP (occurrence: JP)
  Receive Date: 20241210
  Receipt Date: 20250106
  Transmission Date: 20250409
  Serious: No
  Sender: CSL BEHRING
  Company Number: JP-BEH-2024186788

PATIENT
  Age: 6 Decade

DRUGS (3)
  1. HIZENTRA [Suspect]
     Active Substance: HUMAN IMMUNOGLOBULIN G
     Indication: Product used for unknown indication
     Dosage: 4 G, QW
     Route: 058
  2. HIZENTRA [Suspect]
     Active Substance: HUMAN IMMUNOGLOBULIN G
     Route: 058
  3. ALBUMIN HUMAN [Suspect]
     Active Substance: ALBUMIN HUMAN
     Route: 065

REACTIONS (2)
  - Blood beta-D-glucan positive [Recovered/Resolved]
  - False positive investigation result [Unknown]
